FAERS Safety Report 25605661 (Version 2)
Quarter: 2025Q3

REPORT INFORMATION
  Report Type: Spontaneous
  Country: EU (occurrence: EU)
  Receive Date: 20250725
  Receipt Date: 20250820
  Transmission Date: 20251021
  Serious: Yes (Other)
  Sender: UCB
  Company Number: EU-UCBSA-2025045277

PATIENT
  Sex: Female

DRUGS (1)
  1. BIMZELX [Suspect]
     Active Substance: BIMEKIZUMAB-BKZX
     Indication: Hidradenitis
     Dates: start: 202503, end: 2025

REACTIONS (7)
  - Surgery [Unknown]
  - Dry skin [Unknown]
  - Dandruff [Unknown]
  - Abscess [Not Recovered/Not Resolved]
  - Induration [Unknown]
  - Drug ineffective [Unknown]
  - Product distribution issue [Unknown]

NARRATIVE: CASE EVENT DATE: 20250101
